FAERS Safety Report 9166481 (Version 1)
Quarter: 2013Q1

REPORT INFORMATION
  Report Type: Report from Study
  Country: CA (occurrence: CA)
  Receive Date: 20130315
  Receipt Date: 20130315
  Transmission Date: 20140127
  Serious: Yes (Other)
  Sender: FDA-Public Use
  Company Number: CA-JNJFOC-20130302239

PATIENT
  Sex: Male
  Weight: 86.18 kg

DRUGS (3)
  1. REMICADE [Suspect]
     Indication: CROHN^S DISEASE
     Route: 042
     Dates: start: 201204
  2. IMURAN [Concomitant]
     Route: 048
  3. PREDNISONE [Concomitant]
     Route: 048

REACTIONS (1)
  - Fistula [Unknown]
